FAERS Safety Report 7289237-4 (Version None)
Quarter: 2011Q1

REPORT INFORMATION
  Report Type: 
  Country: None (occurrence: None)
  Receive Date: 20110201
  Receipt Date: 20110119
  Transmission Date: 20110831
  Serious: Yes (Life-Threatening)
  Sender: FDA-Public Use
  Company Number: 2010P1002957

PATIENT
  Sex: Female
  Weight: 53.5244 kg

DRUGS (9)
  1. HYDROCODONE [Concomitant]
  2. FENTANYL [Suspect]
     Indication: NEURALGIA
     Dosage: 1 PATCH;Q3D;TDER
     Route: 062
     Dates: start: 20101101, end: 20101126
  3. FENTANYL [Suspect]
     Indication: CLUSTER HEADACHE
     Dosage: 1 PATCH;Q3D;TDER
     Route: 062
     Dates: start: 20101101, end: 20101126
  4. FENTANYL [Suspect]
     Indication: FIBROMYALGIA
     Dosage: 1 PATCH;Q3D;TDER
     Route: 062
     Dates: start: 20101101, end: 20101126
  5. FENTANYL [Suspect]
     Indication: NEURALGIA
     Dates: start: 20100301, end: 20101101
  6. FENTANYL [Suspect]
     Indication: FIBROMYALGIA
     Dates: start: 20100301, end: 20101101
  7. FENTANYL [Suspect]
     Indication: CLUSTER HEADACHE
     Dates: start: 20100301, end: 20101101
  8. XANAX [Concomitant]
  9. INDERAL LA [Concomitant]

REACTIONS (29)
  - PLATELET COUNT ABNORMAL [None]
  - MUSCLE SPASMS [None]
  - ERYTHEMA [None]
  - PAIN [None]
  - CYANOSIS [None]
  - PRODUCT MEASURED POTENCY ISSUE [None]
  - APPLICATION SITE RASH [None]
  - DYSPNOEA [None]
  - PRURITUS [None]
  - BLISTER [None]
  - APNOEA [None]
  - ASTHENIA [None]
  - GAIT DISTURBANCE [None]
  - FEELING ABNORMAL [None]
  - CONFUSIONAL STATE [None]
  - IMMOBILE [None]
  - CONTUSION [None]
  - VOMITING [None]
  - NO THERAPEUTIC RESPONSE [None]
  - SKIN LESION [None]
  - CHEST PAIN [None]
  - HEADACHE [None]
  - SKIN DISCOLOURATION [None]
  - HAEMORRHAGE [None]
  - NIGHT SWEATS [None]
  - DYSPHONIA [None]
  - WITHDRAWAL SYNDROME [None]
  - PRODUCT ADHESION ISSUE [None]
  - THINKING ABNORMAL [None]
